FAERS Safety Report 18937066 (Version 1)
Quarter: 2021Q1

REPORT INFORMATION
  Report Type: Spontaneous
  Country: FI (occurrence: FI)
  Receive Date: 20210225
  Receipt Date: 20210225
  Transmission Date: 20210420
  Serious: Yes (Life-Threatening, Other)
  Sender: FDA-Public Use
  Company Number: FI-TAKEDA-2021TUS011476

PATIENT
  Age: 77 Year
  Sex: Female

DRUGS (15)
  1. NINLARO [Suspect]
     Active Substance: IXAZOMIB CITRATE
     Indication: PLASMA CELL MYELOMA
     Dosage: 4 MILLIGRAM, 1/WEEK
     Route: 048
     Dates: start: 20201012
  2. PAMIFOS [Concomitant]
     Active Substance: PAMIDRONATE DISODIUM
     Dosage: UNK
  3. ACYRAX [ACICLOVIR] [Concomitant]
     Indication: HERPES ZOSTER
     Dosage: 400 MILLIGRAM, QD
     Route: 048
  4. PRIMASPAN [Concomitant]
     Active Substance: ASPIRIN
     Dosage: 100 MILLIGRAM, QD
     Route: 048
  5. DEXAMETASON ABCUR [Concomitant]
     Dosage: 20 MILLIGRAM
  6. CALCICHEW D3 FORTE [Concomitant]
     Active Substance: CALCIUM\CHOLECALCIFEROL
     Dosage: UNK UNK, QD
     Route: 048
  7. EMCONCOR [Concomitant]
     Active Substance: BISOPROLOL FUMARATE
     Dosage: 15 MILLIGRAM, QD
     Route: 048
  8. ORMOX [Concomitant]
     Dosage: 40 MILLIGRAM, QD
     Route: 048
  9. INNOHEP [Concomitant]
     Active Substance: TINZAPARIN SODIUM
     Dosage: 4500 INTERNATIONAL UNIT, QD
  10. CRESTOR [Concomitant]
     Active Substance: ROSUVASTATIN CALCIUM
     Dosage: 10 MILLIGRAM, QD
     Route: 048
  11. EUCREAS [Concomitant]
     Active Substance: METFORMIN HYDROCHLORIDE\VILDAGLIPTIN
     Indication: DIABETES MELLITUS
     Dosage: UNK UNK, QD
     Route: 048
  12. ZARZIO [Concomitant]
     Active Substance: FILGRASTIM
     Dosage: UNK
  13. SOMAC [Concomitant]
     Active Substance: PANTOPRAZOLE SODIUM
     Indication: ANTACID THERAPY
     Dosage: 40 MILLIGRAM, QD
     Route: 048
  14. THYROXIN [Concomitant]
     Active Substance: LEVOTHYROXINE
     Dosage: 650 MICROGRAM, 1/WEEK
     Route: 048
  15. REVLIMID [Concomitant]
     Active Substance: LENALIDOMIDE
     Dosage: 15 MILLIGRAM

REACTIONS (1)
  - Angina pectoris [Recovered/Resolved]

NARRATIVE: CASE EVENT DATE: 20201214
